FAERS Safety Report 4848279-6 (Version None)
Quarter: 2005Q4

REPORT INFORMATION
  Report Type: 
  Country: None (occurrence: None)
  Receive Date: 20051206
  Receipt Date: 20051129
  Transmission Date: 20060501
  Serious: Yes (Death, Hospitalization)
  Sender: FDA-Public Use
  Company Number: 163-20785-05110023

PATIENT
  Age: 49 Year
  Sex: Male

DRUGS (14)
  1. THALOMID [Suspect]
     Indication: FIBROSIS
     Dosage: 50 MG DAILY ORAL
     Route: 048
     Dates: start: 20050512, end: 20051026
  2. HEPARIN [Suspect]
     Indication: THROMBOSIS PROPHYLAXIS
  3. ZEMPLAR [Concomitant]
  4. FERRLECIT [Concomitant]
  5. ERYTHROPOIETIN (ERYTHROPOEITIN) [Concomitant]
  6. NEPHROCAPS (NEPHROCAPS) [Concomitant]
  7. ASPIRIN [Concomitant]
  8. PEPCID [Concomitant]
  9. COLCHICUM JTL LIQ [Concomitant]
  10. PROMOD [Concomitant]
  11. CLONAZEPAM [Concomitant]
  12. RENAGEL [Concomitant]
  13. HUMULIN N [Concomitant]
  14. HUMULIN R [Concomitant]

REACTIONS (32)
  - ALANINE AMINOTRANSFERASE INCREASED [None]
  - ASPARTATE AMINOTRANSFERASE INCREASED [None]
  - BLOOD ALBUMIN DECREASED [None]
  - BLOOD ALKALINE PHOSPHATASE INCREASED [None]
  - BLOOD BICARBONATE DECREASED [None]
  - BLOOD CALCIUM INCREASED [None]
  - BLOOD CHLORIDE DECREASED [None]
  - BLOOD GLUCOSE INCREASED [None]
  - BLOOD POTASSIUM INCREASED [None]
  - BLOOD PRESSURE DECREASED [None]
  - BLOOD SODIUM DECREASED [None]
  - BLOOD UREA INCREASED [None]
  - CARDIO-RESPIRATORY ARREST [None]
  - CEREBROVASCULAR ACCIDENT [None]
  - CHEST X-RAY ABNORMAL [None]
  - CONFUSIONAL STATE [None]
  - DIABETIC KETOACIDOSIS [None]
  - DISEASE PROGRESSION [None]
  - DISORIENTATION [None]
  - DYSPNOEA [None]
  - HEPARIN-INDUCED THROMBOCYTOPENIA [None]
  - HYPERCALCAEMIA [None]
  - HYPERGLYCAEMIA [None]
  - HYPERKALAEMIA [None]
  - LOBAR PNEUMONIA [None]
  - LYMPHOCYTE PERCENTAGE DECREASED [None]
  - MONOCYTE COUNT INCREASED [None]
  - NEPHROGENIC FIBROSING DERMOPATHY [None]
  - NEUTROPHIL PERCENTAGE INCREASED [None]
  - PROTEIN TOTAL DECREASED [None]
  - RENAL FAILURE CHRONIC [None]
  - RESPIRATORY RATE INCREASED [None]
